FAERS Safety Report 11734222 (Version 1)
Quarter: 2015Q4

REPORT INFORMATION
  Report Type: Spontaneous
  Country: FR (occurrence: FR)
  Receive Date: 20151113
  Receipt Date: 20151113
  Transmission Date: 20160304
  Serious: Yes (Hospitalization)
  Sender: FDA-Public Use
  Company Number: FR-009507513-1511FRA005737

PATIENT
  Age: 72 Year
  Sex: Female

DRUGS (13)
  1. ONDANSETRON [Suspect]
     Active Substance: ONDANSETRON
     Indication: PROPHYLAXIS OF NAUSEA AND VOMITING
     Dosage: 1 DF, PRN
     Route: 048
     Dates: start: 20150827, end: 20150831
  2. MONOCRIXO [Concomitant]
     Active Substance: TRAMADOL HYDROCHLORIDE
  3. FARMORUBICINE [Suspect]
     Active Substance: EPIRUBICIN HYDROCHLORIDE
     Indication: INVASIVE DUCTAL BREAST CARCINOMA
     Dosage: TOTAL DAILY DOSE: 1, CYCLE
     Route: 042
     Dates: start: 20150806, end: 20150827
  4. SOLUPRED [Suspect]
     Active Substance: PREDNISOLONE
     Indication: PROPHYLAXIS OF NAUSEA AND VOMITING
     Dosage: 20 MG, BID
     Route: 048
     Dates: start: 20150827, end: 20150830
  5. LUMIGAN [Concomitant]
     Active Substance: BIMATOPROST
  6. ENDOXAN [Suspect]
     Active Substance: CYCLOPHOSPHAMIDE
     Indication: INVASIVE DUCTAL BREAST CARCINOMA
     Dosage: TOTAL DAILY DOSE: 1 CYCLE
     Route: 042
     Dates: start: 20150806, end: 20150827
  7. FLUOROURACIL. [Suspect]
     Active Substance: FLUOROURACIL
     Indication: INVASIVE DUCTAL BREAST CARCINOMA
     Dosage: TOTAL DAILY DOSE: 1 CYCLE; STRENGTH 50 MG/ML
     Route: 042
     Dates: start: 20150806, end: 20150827
  8. EMEND [Suspect]
     Active Substance: APREPITANT
     Indication: PROPHYLAXIS OF NAUSEA AND VOMITING
     Dosage: 1 DF, QD
     Route: 048
     Dates: start: 20150827, end: 20150830
  9. PRIMPERAN [Suspect]
     Active Substance: METOCLOPRAMIDE HYDROCHLORIDE
     Indication: VOMITING
     Dosage: 10 MG, QD, TAKEN 3 DAYS AT CYCLE 1 AND 8 DAYS AT CYCLE 2
     Route: 048
     Dates: start: 20150827, end: 20150904
  10. XANAX [Concomitant]
     Active Substance: ALPRAZOLAM
     Indication: PREMEDICATION
     Dosage: UNK
  11. ALDACTAZINE [Concomitant]
     Active Substance: ALTHIAZIDE\SPIRONOLACTONE
  12. IXPRIM (ACETAMINOPHEN (+) TRAMADOL HYDROCHLORIDE) [Concomitant]
     Active Substance: ACETAMINOPHEN\TRAMADOL
  13. MOPRAL (OMEPRAZOLE MAGNESIUM) [Concomitant]

REACTIONS (1)
  - Colitis [Recovered/Resolved]

NARRATIVE: CASE EVENT DATE: 20150904
